FAERS Safety Report 5244190-X (Version None)
Quarter: 2007Q1

REPORT INFORMATION
  Report Type: 
  Country: None (occurrence: None)
  Receive Date: 20070222
  Receipt Date: 20070219
  Transmission Date: 20070707
  Serious: Yes (Other)
  Sender: FDA-Public Use
  Company Number: JP-GLAXOSMITHKLINE-B0453939A

PATIENT
  Age: 27 Year
  Sex: Male

DRUGS (5)
  1. PAXIL [Suspect]
     Indication: DEPRESSION
     Route: 048
     Dates: start: 20060920
  2. MEILAX [Concomitant]
     Indication: DEPRESSION
     Dosage: 2MG PER DAY
     Route: 048
     Dates: start: 20060920, end: 20061211
  3. ROHYPNOL [Concomitant]
     Indication: INSOMNIA
     Dosage: 2MG PER DAY
     Route: 048
     Dates: start: 20060920
  4. LENDORMIN [Concomitant]
     Indication: INSOMNIA
     Route: 048
     Dates: start: 20061004, end: 20070109
  5. NAUZELIN [Concomitant]
     Indication: GASTRITIS
     Dosage: 30MG PER DAY
     Route: 048
     Dates: start: 20061011, end: 20061018

REACTIONS (10)
  - ANXIETY [None]
  - BIPOLAR I DISORDER [None]
  - DEPRESSIVE SYMPTOM [None]
  - DISINHIBITION [None]
  - HYPERKINESIA [None]
  - IRRITABILITY [None]
  - LOGORRHOEA [None]
  - MANIA [None]
  - PSYCHIATRIC SYMPTOM [None]
  - SUICIDAL IDEATION [None]
